FAERS Safety Report 25814461 (Version 1)
Quarter: 2025Q3

REPORT INFORMATION
  Report Type: Spontaneous
  Country: JP (occurrence: JP)
  Receive Date: 20250917
  Receipt Date: 20250917
  Transmission Date: 20251020
  Serious: Yes (Hospitalization, Other)
  Sender: PFIZER
  Company Number: JP-GENMAB-2025-02731

PATIENT
  Age: 6 Decade
  Sex: Female

DRUGS (2)
  1. TIVDAK [Suspect]
     Active Substance: TISOTUMAB VEDOTIN-TFTV
     Indication: Cervix carcinoma recurrent
     Dosage: 1ST, 2 MG/KG(BODY WEIGHT) ADMINISTERED OVER 30 MIN OR LONGER, IV INFUSION ONCE EVERY 3 WEEKS
     Route: 042
     Dates: start: 202507, end: 202507
  2. TIVDAK [Suspect]
     Active Substance: TISOTUMAB VEDOTIN-TFTV
     Dosage: 2ND, 2 MG/KG(BODY WEIGHT) ADMINISTERED OVER 30 MIN OR LONGER, IV INFUSION ONCE EVERY 3 WEEKS
     Route: 042
     Dates: start: 202508, end: 202508

REACTIONS (2)
  - Gastrointestinal haemorrhage [Recovered/Resolved]
  - Gastrointestinal haemorrhage [Recovered/Resolved]

NARRATIVE: CASE EVENT DATE: 20250701
